FAERS Safety Report 5631872-0 (Version None)
Quarter: 2008Q1

REPORT INFORMATION
  Report Type: 
  Country: None (occurrence: None)
  Receive Date: 20080220
  Receipt Date: 20080211
  Transmission Date: 20080703
  Serious: Yes (Other)
  Sender: FDA-Public Use
  Company Number: US-ROCHE-546464

PATIENT
  Age: 73 Year
  Sex: Female

DRUGS (3)
  1. BONIVA [Suspect]
     Indication: DRUG USE FOR UNKNOWN INDICATION
     Route: 042
     Dates: start: 20070401
  2. VACCINE NOS [Suspect]
     Indication: PROPHYLAXIS
     Route: 065
     Dates: start: 20071031
  3. INFLUENZA VACCINE [Suspect]
     Route: 065
     Dates: start: 20071031

REACTIONS (1)
  - STAPHYLOCOCCAL INFECTION [None]
